FAERS Safety Report 7626074-2 (Version None)
Quarter: 2011Q3

REPORT INFORMATION
  Report Type: 
  Country: None (occurrence: None)
  Receive Date: 20110713
  Receipt Date: 20110628
  Transmission Date: 20111222
  Serious: Yes (Death)
  Sender: FDA-Public Use
  Company Number: 2011-280

PATIENT
  Age: 80 Year
  Sex: Male

DRUGS (1)
  1. FAZACLO ODT [Suspect]
     Indication: SCHIZOPHRENIA
     Dosage: 225 MG, QD, ORAL
     Route: 048
     Dates: start: 20070129, end: 20080416

REACTIONS (1)
  - DEATH [None]
